FAERS Safety Report 6669942-0 (Version None)
Quarter: 2010Q2

REPORT INFORMATION
  Report Type: 
  Country: None (occurrence: None)
  Receive Date: 20100406
  Receipt Date: 20100120
  Transmission Date: 20101027
  Serious: No
  Sender: FDA-Public Use
  Company Number: US-ALLERGAN-1000720US

PATIENT
  Sex: Female

DRUGS (3)
  1. LATISSE [Suspect]
     Indication: GROWTH OF EYELASHES
     Dosage: 1 GTT, QPM
  2. PRILOSEC [Concomitant]
  3. SINGULAIR [Concomitant]
     Indication: ASTHMA

REACTIONS (3)
  - ERYTHEMA OF EYELID [None]
  - EYELIDS PRURITUS [None]
  - HORDEOLUM [None]
